FAERS Safety Report 5510962-7 (Version None)
Quarter: 2007Q4

REPORT INFORMATION
  Report Type: 
  Country: None (occurrence: None)
  Receive Date: 20071109
  Receipt Date: 20071029
  Transmission Date: 20080405
  Serious: Yes (Hospitalization, Other)
  Sender: FDA-Public Use
  Company Number: PHEH2007US13855

PATIENT
  Sex: Male
  Weight: 62.131 kg

DRUGS (4)
  1. EXELON [Suspect]
     Indication: PARKINSON'S DISEASE
     Route: 062
  2. ZOLOFT [Suspect]
  3. SEROQUEL [Suspect]
  4. CALCIUM [Suspect]

REACTIONS (7)
  - ABASIA [None]
  - ANOREXIA [None]
  - ASTHENIA [None]
  - CONTUSION [None]
  - DEPRESSION [None]
  - FALL [None]
  - WEIGHT DECREASED [None]
